FAERS Safety Report 16857527 (Version 1)
Quarter: 2019Q3

REPORT INFORMATION
  Report Type: Spontaneous
  Country: CA (occurrence: CA)
  Receive Date: 20190926
  Receipt Date: 20190926
  Transmission Date: 20191005
  Serious: Yes (Other)
  Sender: FDA-Public Use
  Company Number: CA-PFIZER INC-2019411906

PATIENT
  Age: 42 Year
  Sex: Female
  Weight: 55.78 kg

DRUGS (3)
  1. VITAMINS [ASCORBIC ACID;ERGOCALCIFEROL;NICOTINAMIDE;RETINOL;RIBOFLAVIN [Concomitant]
     Dosage: UNK
  2. LEVOFLOXACIN. [Suspect]
     Active Substance: LEVOFLOXACIN
     Indication: SINUSITIS
     Dosage: UNK
  3. LINESSA 28 [Concomitant]
     Active Substance: DESOGESTREL\ETHINYL ESTRADIOL
     Dosage: UNK

REACTIONS (5)
  - Pain in extremity [Unknown]
  - Skin discolouration [Unknown]
  - Medial tibial stress syndrome [Unknown]
  - Peripheral swelling [Unknown]
  - Arthralgia [Unknown]
